FAERS Safety Report 8937202 (Version 1)
Quarter: 2012Q4

REPORT INFORMATION
  Report Type: Spontaneous
  Country: US (occurrence: None)
  Receive Date: 20121128
  Receipt Date: 20121128
  Transmission Date: 20130627
  Serious: Yes (Hospitalization)
  Sender: FDA-Public Use
  Company Number: None

PATIENT
  Age: 78 Year
  Sex: Male
  Weight: 112.5 kg

DRUGS (13)
  1. WARFARIN [Suspect]
     Indication: ATRIAL FIBRILLATION
     Dosage: 10MG  DAILY  PO
CHRONIC
     Route: 048
  2. ASA [Suspect]
     Indication: CORONARY ARTERY DISEASE
     Dosage: 81MG  DAILY  PO
CHRONIC
     Route: 048
  3. FUROSEMIDE [Concomitant]
  4. APAP/CODEINE [Concomitant]
  5. LOSARTAN [Concomitant]
  6. SPIRONOLACTONE [Concomitant]
  7. IMDUR [Concomitant]
  8. COREG [Concomitant]
  9. TRAMADOL [Concomitant]
  10. LIPITOR [Concomitant]
  11. PREVACID [Concomitant]
  12. CLORAZEPATE [Concomitant]
  13. GABAPENTIN [Concomitant]

REACTIONS (2)
  - Epistaxis [None]
  - Gastrointestinal haemorrhage [None]
